FAERS Safety Report 6588151-7 (Version None)
Quarter: 2010Q1

REPORT INFORMATION
  Report Type: 
  Country: None (occurrence: None)
  Receive Date: 20100218
  Receipt Date: 20091016
  Transmission Date: 20100710
  Serious: No
  Sender: FDA-Public Use
  Company Number: US-ASTRAZENECA-2009SE20784

PATIENT
  Sex: Female

DRUGS (1)
  1. PLENDIL [Suspect]
     Indication: HYPERTENSION
     Route: 048

REACTIONS (2)
  - BLOOD PRESSURE INCREASED [None]
  - RASH [None]
